FAERS Safety Report 9432690 (Version 1)
Quarter: 2013Q3

REPORT INFORMATION
  Report Type: Spontaneous
  Country: US (occurrence: US)
  Receive Date: 20130731
  Receipt Date: 20130731
  Transmission Date: 20140515
  Serious: Yes (Hospitalization)
  Sender: FDA-Public Use
  Company Number: US-SANOFI-AVENTIS-2013SA076734

PATIENT
  Age: 50 Year
  Sex: 0

DRUGS (1)
  1. AUBAGIO [Suspect]
     Route: 048

REACTIONS (4)
  - Meningeal disorder [Unknown]
  - Headache [Unknown]
  - Nausea [Unknown]
  - Vomiting [Unknown]
